FAERS Safety Report 5286182-0 (Version None)
Quarter: 2007Q2

REPORT INFORMATION
  Report Type: 
  Country: None (occurrence: None)
  Receive Date: 20070403
  Receipt Date: 20070403
  Transmission Date: 20071010
  Serious: Yes (Hospitalization)
  Sender: FDA-Public Use
  Company Number: None

PATIENT
  Age: 40 Year
  Sex: Male

DRUGS (1)
  1. CARBAMAZEPINE [Suspect]
     Indication: ANXIETY
     Dosage: 200MG TID PO
     Route: 048
     Dates: start: 20070107, end: 20070117

REACTIONS (5)
  - DRUG HYPERSENSITIVITY [None]
  - NO THERAPEUTIC RESPONSE [None]
  - PAIN [None]
  - RASH ERYTHEMATOUS [None]
  - RASH GENERALISED [None]
